FAERS Safety Report 6024163-X (Version None)
Quarter: 2008Q4

REPORT INFORMATION
  Report Type: 
  Country: None (occurrence: None)
  Receive Date: 20081224
  Receipt Date: 20081211
  Transmission Date: 20090506
  Serious: Yes (Hospitalization)
  Sender: FDA-Public Use
  Company Number: KV200801109

PATIENT
  Age: 73 Year
  Sex: Male
  Weight: 93 kg

DRUGS (13)
  1. ISOSORBIDE MONONITRATE [Suspect]
     Indication: CARDIAC DISORDER
     Dosage: 60 MG, THREE TABLETS,QD,ORAL
     Route: 048
     Dates: start: 20071201
  2. ASPIRIN [Concomitant]
  3. LISINOPRIL [Concomitant]
  4. XANAX [Concomitant]
  5. ALLOPURINOL [Concomitant]
  6. IMDUR [Concomitant]
  7. NORVASC/00972401/ (AMLODIPINE) [Concomitant]
  8. FUROSEMIDE [Concomitant]
  9. POTASSIUM CHLORIDE [Concomitant]
  10. WARFARIN SODIUM [Concomitant]
  11. PROZAC/00724401/ (FLUOXETINE) [Concomitant]
  12. AMBIEN [Concomitant]
  13. NITROGLYCERIN [Concomitant]

REACTIONS (2)
  - HYPOTENSION [None]
  - PRODUCT QUALITY ISSUE [None]
